FAERS Safety Report 5424703-5 (Version None)
Quarter: 2007Q3

REPORT INFORMATION
  Report Type: 
  Country: None (occurrence: None)
  Receive Date: 20070824
  Receipt Date: 20070816
  Transmission Date: 20080115
  Serious: Yes (Hospitalization)
  Sender: FDA-Public Use
  Company Number: CO-JNJFOC-20070803881

PATIENT
  Age: 60 Year
  Sex: Male

DRUGS (2)
  1. NATRECOR [Suspect]
     Route: 042
  2. NATRECOR [Suspect]
     Indication: CARDIAC FAILURE CONGESTIVE
     Route: 042

REACTIONS (1)
  - PNEUMONIA [None]
